FAERS Safety Report 4687046-3 (Version None)
Quarter: 2005Q2

REPORT INFORMATION
  Report Type: 
  Country: None (occurrence: None)
  Receive Date: 20050608
  Receipt Date: 20050524
  Transmission Date: 20051028
  Serious: Yes (Hospitalization)
  Sender: FDA-Public Use
  Company Number: DSA_26480_2005

PATIENT
  Age: 8 Year
  Sex: Female

DRUGS (5)
  1. TAVOR [Suspect]
     Indication: ANXIETY
     Dosage: 1 MG ONCE PO
     Route: 048
     Dates: start: 20050502, end: 20050502
  2. TRAPANAL [Concomitant]
  3. SEVORANE [Concomitant]
  4. DIPIDOLOR [Concomitant]
  5. UILTIVA [Concomitant]

REACTIONS (3)
  - BALANCE DISORDER [None]
  - COORDINATION ABNORMAL [None]
  - POST PROCEDURAL COMPLICATION [None]
